FAERS Safety Report 6643234-8 (Version None)
Quarter: 2010Q1

REPORT INFORMATION
  Report Type: 
  Country: None (occurrence: None)
  Receive Date: 20100319
  Receipt Date: 20100310
  Transmission Date: 20100710
  Serious: Yes (Other)
  Sender: FDA-Public Use
  Company Number: BR-ABBOTT-09P-020-0612418-00

PATIENT
  Sex: Female
  Weight: 72 kg

DRUGS (6)
  1. HUMIRA [Suspect]
     Indication: RHEUMATOID ARTHRITIS
     Route: 058
     Dates: start: 20070312
  2. METICORTEN [Concomitant]
     Indication: RHEUMATOID ARTHRITIS
     Route: 048
     Dates: start: 19830101
  3. EUTHYROX [Concomitant]
     Indication: HYPOTHYROIDISM
     Route: 048
     Dates: start: 20030101
  4. ASPIRIN [Concomitant]
     Indication: CARDIAC DISORDER
     Route: 048
     Dates: start: 20080101
  5. NIMESULIDE [Concomitant]
     Indication: ANTIINFLAMMATORY THERAPY
     Route: 048
     Dates: start: 20090801
  6. DEXADOR [Concomitant]
     Indication: PAIN
     Dosage: CYANOCOBALAMIN 5000MG/ PYRIDOXINE 100MG/ THIAMINE 100MG/ DEXAMETHASONE 0.5MG
     Route: 048
     Dates: start: 20090601

REACTIONS (5)
  - CHILLS [None]
  - ILL-DEFINED DISORDER [None]
  - INFLAMMATION [None]
  - PARAESTHESIA [None]
  - PARALYSIS [None]
